FAERS Safety Report 8162969-1 (Version None)
Quarter: 2012Q1

REPORT INFORMATION
  Report Type: 
  Country: None (occurrence: None)
  Receive Date: 20120224
  Receipt Date: 20120213
  Transmission Date: 20120608
  Serious: No
  Sender: FDA-Public Use
  Company Number: JP-ASTRAZENECA-2012SE07193

PATIENT
  Age: 65 Year
  Sex: Female
  Weight: 50 kg

DRUGS (2)
  1. CRESTOR [Suspect]
     Indication: DYSLIPIDAEMIA
     Route: 048
     Dates: start: 20120119, end: 20120121
  2. LEVOTHYROXINE SODIUM [Concomitant]
     Route: 048
     Dates: start: 20120119

REACTIONS (1)
  - HEPATIC FUNCTION ABNORMAL [None]
